FAERS Safety Report 4931106-6 (Version None)
Quarter: 2006Q1

REPORT INFORMATION
  Report Type: 
  Country: None (occurrence: None)
  Receive Date: 20060302
  Receipt Date: 20050816
  Transmission Date: 20060701
  Serious: Yes (Hospitalization, Other)
  Sender: FDA-Public Use
  Company Number: US-MERCK-0508USA02969

PATIENT
  Age: 72 Year
  Sex: Female
  Weight: 70 kg

DRUGS (1)
  1. VIOXX [Suspect]
     Indication: ARTHROPATHY
     Route: 048
     Dates: start: 20010101, end: 20040930

REACTIONS (17)
  - ASTHENIA [None]
  - BALANCE DISORDER [None]
  - CEREBROVASCULAR ACCIDENT [None]
  - CHEST DISCOMFORT [None]
  - CORNEAL REFLEX DECREASED [None]
  - DIARRHOEA [None]
  - DYSARTHRIA [None]
  - DYSGEUSIA [None]
  - EAR PAIN [None]
  - HYPERTENSION [None]
  - LACRIMATION DECREASED [None]
  - OBSESSIVE-COMPULSIVE DISORDER [None]
  - PAIN [None]
  - PARAESTHESIA [None]
  - ROTATOR CUFF SYNDROME [None]
  - SWELLING [None]
  - VOMITING [None]
